FAERS Safety Report 8919776 (Version 1)
Quarter: 2012Q4

REPORT INFORMATION
  Report Type: Report from Study
  Country: US (occurrence: US)
  Receive Date: 20121121
  Receipt Date: 20121121
  Transmission Date: 20130627
  Serious: Yes (Other)
  Sender: FDA-Public Use
  Company Number: US-ABBOTT-12P-163-1007921-00

PATIENT
  Age: 44 Year
  Sex: Female

DRUGS (4)
  1. HUMIRA [Suspect]
     Indication: CROHN^S DISEASE
  2. HUMIRA [Suspect]
     Dates: start: 20121004, end: 20121004
  3. HUMIRA [Suspect]
     Dates: start: 20121016, end: 20121016
  4. HUMIRA [Suspect]
     Dates: start: 20121106

REACTIONS (15)
  - Fistula [Unknown]
  - Haemorrhoids [Unknown]
  - Device malfunction [Unknown]
  - Drug dose omission [Unknown]
  - Injection site pain [Unknown]
  - Drug dose omission [Unknown]
  - Injection site pain [Unknown]
  - Injection site bruising [Unknown]
  - Injection site swelling [Unknown]
  - Injection site bruising [Unknown]
  - Injection site swelling [Unknown]
  - Injection site bruising [Unknown]
  - Injection site swelling [Unknown]
  - Inappropriate schedule of drug administration [Unknown]
  - Wrong technique in drug usage process [Unknown]
